FAERS Safety Report 9890023 (Version 1)
Quarter: 2014Q1

REPORT INFORMATION
  Report Type: Spontaneous
  Country: US (occurrence: US)
  Receive Date: 20140212
  Receipt Date: 20140212
  Transmission Date: 20141002
  Serious: No
  Sender: FDA-Public Use
  Company Number: US-BIOGENIDEC-2014BI010937

PATIENT
  Sex: Female

DRUGS (8)
  1. TECFIDERA [Suspect]
     Indication: MULTIPLE SCLEROSIS
     Route: 048
     Dates: start: 20131226, end: 20140101
  2. TECFIDERA [Suspect]
     Indication: MULTIPLE SCLEROSIS
     Route: 048
     Dates: start: 20140102
  3. DEXAMETHASONE [Concomitant]
  4. BACLOFEN [Concomitant]
  5. OXYBUTYNIN [Concomitant]
  6. IBUPROFEN [Concomitant]
  7. IRON [Concomitant]
  8. VITAMIN D [Concomitant]

REACTIONS (3)
  - Hypoaesthesia [Unknown]
  - Cheilitis [Unknown]
  - Sensory disturbance [Unknown]
